FAERS Safety Report 4904130-7 (Version None)
Quarter: 2006Q1

REPORT INFORMATION
  Report Type: 
  Country: None (occurrence: None)
  Receive Date: 20060208
  Receipt Date: 20050613
  Transmission Date: 20060701
  Serious: No
  Sender: FDA-Public Use
  Company Number: US-GLAXOSMITHKLINE-A0562433A

PATIENT
  Sex: Female

DRUGS (10)
  1. PAROXETINE HCL [Suspect]
     Indication: ANXIETY
     Dosage: 10MG PER DAY
     Route: 048
     Dates: start: 20050501
  2. PAXIL [Suspect]
     Indication: ANXIETY
     Dosage: 12.5MG PER DAY
     Route: 048
     Dates: end: 20050501
  3. ZYRTEC [Suspect]
     Indication: POST HERPETIC NEURALGIA
     Dosage: 2.5MG PER DAY
     Route: 048
     Dates: end: 20050612
  4. FOSAMAX [Concomitant]
  5. CALCITRIOL [Concomitant]
  6. CALCIUM GLUCONATE [Concomitant]
  7. VITAMIN E [Concomitant]
  8. VITAMIN B COMPLEX CAP [Concomitant]
  9. ASCORBIC ACID [Concomitant]
     Route: 065
  10. ZYRTEC [Concomitant]

REACTIONS (4)
  - DIZZINESS [None]
  - DRUG WITHDRAWAL SYNDROME [None]
  - NERVOUSNESS [None]
  - PARAESTHESIA [None]
